FAERS Safety Report 13189149 (Version 1)
Quarter: 2017Q1

REPORT INFORMATION
  Report Type: Spontaneous
  Country: US (occurrence: US)
  Receive Date: 20170206
  Receipt Date: 20170206
  Transmission Date: 20170428
  Serious: Yes (Other)
  Sender: FDA-Public Use
  Company Number: US-MYLANLABS-2017M1006380

PATIENT

DRUGS (4)
  1. CYCLOPHOSPHAMIDE. [Suspect]
     Active Substance: CYCLOPHOSPHAMIDE
     Indication: NEOPLASM OF THYMUS
     Dosage: 500 MG/M2 OVER 60 MINUTES IV ON DAY 3 AFTER DOXORUBICIN; 21 DAYS CYCLE
     Route: 042
  2. BELINOSTAT [Suspect]
     Active Substance: BELINOSTAT
     Indication: NEOPLASM OF THYMUS
     Dosage: 4 CONSECUTIVE 12-HOUR CONTINUOUS IV INFUSIONS FOR 48 HOURS STARTING ON DAY 1; 21 DAYS CYCLE
     Route: 041
  3. DOXORUBICIN [Suspect]
     Active Substance: DOXORUBICIN
     Indication: NEOPLASM OF THYMUS
     Dosage: 25MG/M2 ON DAYS 2 AND 3, IV PUSH OVER 3-5 MINUTES; 21 DAYS CYCLE
     Route: 042
  4. CISPLATIN. [Suspect]
     Active Substance: CISPLATIN
     Indication: NEOPLASM OF THYMUS
     Dosage: 50 MG/M2 OVER 60 MINUTES IV ON DAY 2 AFTER DOXORUBICIN; 21 DAYS CYCLE
     Route: 042

REACTIONS (3)
  - Febrile neutropenia [Unknown]
  - Ejection fraction decreased [Unknown]
  - Pulmonary embolism [Unknown]
